FAERS Safety Report 13554353 (Version 6)
Quarter: 2017Q4

REPORT INFORMATION
  Report Type: Spontaneous
  Country: US (occurrence: US)
  Receive Date: 20170517
  Receipt Date: 20171005
  Transmission Date: 20180320
  Serious: Yes (Other)
  Sender: FDA-Public Use
  Company Number: PHEH2017US014018

PATIENT
  Sex: Female

DRUGS (3)
  1. LENVATINIB [Suspect]
     Active Substance: LENVATINIB
     Indication: RENAL CANCER
     Dosage: 8 MG, QD
     Route: 048
     Dates: start: 20170120
  2. LENVATINIB [Suspect]
     Active Substance: LENVATINIB
     Dosage: 16 MG, QD
     Route: 048
     Dates: start: 20170123
  3. AFINITOR [Suspect]
     Active Substance: EVEROLIMUS
     Indication: PRODUCT USED FOR UNKNOWN INDICATION
     Dosage: UNK
     Route: 065

REACTIONS (10)
  - Brain neoplasm [Unknown]
  - Stress [Unknown]
  - Pain [Unknown]
  - Joint swelling [Unknown]
  - Oral pain [Unknown]
  - Nausea [Unknown]
  - Abdominal pain [Unknown]
  - Fatigue [Unknown]
  - Sleep disorder [Unknown]
  - Peripheral swelling [Not Recovered/Not Resolved]
